FAERS Safety Report 13010455 (Version 1)
Quarter: 2016Q4

REPORT INFORMATION
  Report Type: Spontaneous
  Country: US (occurrence: US)
  Receive Date: 20161208
  Receipt Date: 20161208
  Transmission Date: 20170207
  Serious: No
  Sender: FDA-Public Use
  Company Number: US-009507513-1611USA011834

PATIENT
  Sex: Male

DRUGS (2)
  1. ZEPATIER [Suspect]
     Active Substance: ELBASVIR\GRAZOPREVIR
     Indication: PRODUCT USED FOR UNKNOWN INDICATION
     Dosage: 100/50 MG, 1 TABLET DAILY
     Route: 048
     Dates: start: 20160811, end: 201609
  2. ZEPATIER [Suspect]
     Active Substance: ELBASVIR\GRAZOPREVIR
     Dosage: 100/50, QD
     Route: 048
     Dates: start: 20160912

REACTIONS (2)
  - Drug dose omission [Unknown]
  - Disease recurrence [Unknown]

NARRATIVE: CASE EVENT DATE: 201608
